FAERS Safety Report 16745685 (Version 1)
Quarter: 2019Q3

REPORT INFORMATION
  Report Type: Spontaneous
  Country: TW (occurrence: TW)
  Receive Date: 20190827
  Receipt Date: 20190827
  Transmission Date: 20191005
  Serious: Yes (Death, Other)
  Sender: FDA-Public Use
  Company Number: TW-BAYER-2019-156698

PATIENT
  Age: 63 Year
  Sex: Male

DRUGS (2)
  1. REGORAFENIB. [Suspect]
     Active Substance: REGORAFENIB
     Indication: HEPATOCELLULAR CARCINOMA
     Dosage: UNK, QD
     Dates: start: 20131227
  2. REGORAFENIB. [Suspect]
     Active Substance: REGORAFENIB
     Indication: HEPATOCELLULAR CARCINOMA
     Dosage: UNK
     Dates: start: 20131101, end: 20131226

REACTIONS (10)
  - Death [Fatal]
  - Hepatocellular carcinoma [None]
  - Diarrhoea [None]
  - Dyspnoea [None]
  - Palmar-plantar erythrodysaesthesia syndrome [None]
  - Hypertension [None]
  - Peritonitis bacterial [None]
  - Jaundice [None]
  - Abdominal distension [None]
  - Acute kidney injury [None]

NARRATIVE: CASE EVENT DATE: 2013
